FAERS Safety Report 10698797 (Version 2)
Quarter: 2015Q1

REPORT INFORMATION
  Report Type: Report from Study
  Country: BR (occurrence: BR)
  Receive Date: 20150108
  Receipt Date: 20150121
  Transmission Date: 20150721
  Serious: Yes (Other)
  Sender: FDA-Public Use
  Company Number: PHHY2015BR001477

PATIENT
  Sex: Male
  Weight: 116 kg

DRUGS (7)
  1. VASTAREL [Concomitant]
     Active Substance: TRIMETAZIDINE DIHYDROCHLORIDE
     Indication: CARDIAC DISORDER
     Dosage: 2 DF, QD
     Route: 048
     Dates: start: 2012
  2. DIVELOL [Concomitant]
     Indication: CARDIAC DISORDER
     Dosage: 2 DF, QD
     Route: 048
     Dates: start: 2012
  3. DIOVAN AMLO FIX [Suspect]
     Active Substance: AMLODIPINE\VALSARTAN
     Indication: CARDIAC DISORDER
     Dosage: 1 DF, BID (MORNING AND NIGHT)
     Route: 048
     Dates: end: 20141224
  4. ATENSINA [Concomitant]
     Active Substance: CLONIDINE
     Indication: CARDIAC DISORDER
     Dosage: 2 DF, QD
     Route: 048
     Dates: start: 2012
  5. LONITEN [Concomitant]
     Active Substance: MINOXIDIL
     Indication: CARDIAC DISORDER
     Dosage: 1 DF, QD
     Route: 048
  6. SUSTRATE [Concomitant]
     Active Substance: PROPATYL NITRATE
     Indication: CARDIAC DISORDER
     Dosage: 3 DF, QD
     Route: 048
     Dates: start: 2012
  7. DIOVAN HCT [Suspect]
     Active Substance: HYDROCHLOROTHIAZIDE\VALSARTAN
     Indication: CARDIAC DISORDER
     Route: 048
     Dates: start: 201412

REACTIONS (7)
  - Hypertension [Recovered/Resolved]
  - Drug dependence [Recovered/Resolved]
  - Generalised oedema [Recovered/Resolved]
  - Oedema peripheral [Recovering/Resolving]
  - Intentional product use issue [Unknown]
  - Fluid retention [Recovering/Resolving]
  - Cardiac disorder [Recovered/Resolved]
